FAERS Safety Report 6886733-6 (Version None)
Quarter: 2010Q3

REPORT INFORMATION
  Report Type: 
  Country: None (occurrence: None)
  Receive Date: 20100730
  Receipt Date: 20100721
  Transmission Date: 20110219
  Serious: No
  Sender: FDA-Public Use
  Company Number: 2009BI038515

PATIENT
  Age: 64 Year
  Sex: Female

DRUGS (1)
  1. TYSABRI [Suspect]
     Indication: MULTIPLE SCLEROSIS
     Route: 042
     Dates: start: 20080314

REACTIONS (5)
  - ASTHENIA [None]
  - DISCOMFORT [None]
  - FALL [None]
  - HEADACHE [None]
  - MUSCULAR WEAKNESS [None]
